FAERS Safety Report 22597961 (Version 1)
Quarter: 2023Q2

REPORT INFORMATION
  Report Type: Spontaneous
  Country: NO (occurrence: NO)
  Receive Date: 20230614
  Receipt Date: 20230614
  Transmission Date: 20230722
  Serious: Yes (Life-Threatening, Other)
  Sender: FDA-Public Use
  Company Number: None

PATIENT
  Age: 12 Year
  Sex: Male

DRUGS (10)
  1. FASTURTEC [Suspect]
     Active Substance: RASBURICASE
     Indication: Tumour lysis syndrome
     Dosage: 8 MG FOR OVER 30 MIN, QD
     Route: 042
     Dates: start: 20230227, end: 20230227
  2. ORAMORPH SR SUSTAINED RELEASE [Concomitant]
     Active Substance: MORPHINE SULFATE
     Dosage: UNK
  3. DAUNORUBICIN [Concomitant]
     Active Substance: DAUNORUBICIN
     Dosage: 32 MG
     Dates: start: 20230227, end: 20230227
  4. ZOLEDO [Concomitant]
     Indication: Idiopathic juvenile osteoporosis
     Dosage: UNK
  5. OMEPRAZOL PENSA [OMEPRAZOLE] [Concomitant]
     Dosage: UNK
  6. METHOTREXATE [Concomitant]
     Active Substance: METHOTREXATE
     Dosage: UNK
     Dates: start: 2023
  7. CEFOTAXIME SODIUM [Concomitant]
     Active Substance: CEFOTAXIME SODIUM
     Dosage: 2 G, TID
     Dates: start: 20230227
  8. VINCRISTINE [Concomitant]
     Active Substance: VINCRISTINE
     Dosage: 2 MG
     Dates: start: 20230227, end: 20230227
  9. DEXAMETASON ABCUR [Concomitant]
     Dosage: 4 MG, BID
     Dates: start: 20230227
  10. ONDANSETRON HAMELN [Concomitant]
     Dosage: UNK

REACTIONS (2)
  - Respiratory failure [Recovered/Resolved]
  - Methaemoglobinaemia [Recovered/Resolved]

NARRATIVE: CASE EVENT DATE: 20230228
